FAERS Safety Report 4889946-8 (Version None)
Quarter: 2006Q1

REPORT INFORMATION
  Report Type: 
  Country: None (occurrence: None)
  Receive Date: 20060123
  Receipt Date: 20060123
  Transmission Date: 20060701
  Serious: Yes (Life-Threatening, Hospitalization, Other)
  Sender: FDA-Public Use
  Company Number: None

PATIENT
  Age: 34 Year
  Sex: Female
  Weight: 81.9 kg

DRUGS (2)
  1. RELACORE CARTER REED COMPANY [Suspect]
     Indication: STRESS
     Dosage: 1 CAPSULE TID PO
     Route: 048
  2. RELACORE CARTER REED COMPANY [Suspect]
     Indication: WEIGHT CONTROL
     Dosage: 1 CAPSULE TID PO
     Route: 048

REACTIONS (6)
  - GASTROOESOPHAGEAL REFLUX DISEASE [None]
  - HEPATIC FAILURE [None]
  - MALAISE [None]
  - NAUSEA [None]
  - SELF-MEDICATION [None]
  - VOMITING [None]
